FAERS Safety Report 9605020 (Version 1)
Quarter: 2013Q4

REPORT INFORMATION
  Report Type: Report from Study
  Country: BR (occurrence: BR)
  Receive Date: 20131008
  Receipt Date: 20131008
  Transmission Date: 20140711
  Serious: Yes (Other)
  Sender: FDA-Public Use
  Company Number: PHHY2013BR111726

PATIENT
  Age: 69 Year
  Sex: Male

DRUGS (9)
  1. INDACATEROL [Suspect]
     Indication: CHRONIC OBSTRUCTIVE PULMONARY DISEASE
     Dosage: 150 UG, UNK
     Dates: start: 201101
  2. INDACATEROL [Suspect]
     Dosage: 300 UG, UNK
     Dates: start: 201207
  3. DIOVAN [Suspect]
     Indication: HYPERTENSION
     Dosage: UNK UKN, UNK
  4. TIOTROPIUM [Concomitant]
     Dosage: 2.5 UG, UNK
     Dates: start: 201101
  5. ROFLUMILAST [Concomitant]
     Dosage: 500 UG, UNK
     Dates: start: 201109
  6. MOMETASONE [Concomitant]
     Dosage: 400 UG, UNK
     Dates: start: 201109
  7. LASIX [Concomitant]
     Dosage: UNK UKN, UNK
  8. CRESTOR [Concomitant]
     Dosage: UNK UKN, UNK
  9. ASA [Concomitant]
     Dosage: UNK UKN, UNK

REACTIONS (17)
  - Ischaemic cardiomyopathy [Unknown]
  - Diastolic dysfunction [Unknown]
  - Left ventricular dysfunction [Unknown]
  - Mitral valve incompetence [Unknown]
  - Aortic valve incompetence [Unknown]
  - Cardiovascular function test abnormal [Unknown]
  - Left ventricular hypertrophy [Unknown]
  - Ventricular hypokinesia [Unknown]
  - Tricuspid valve incompetence [Unknown]
  - Emphysema [Unknown]
  - Bronchiectasis [Unknown]
  - Obstructive airways disorder [Unknown]
  - Dyspnoea [Unknown]
  - Functional residual capacity decreased [Unknown]
  - Total lung capacity decreased [Unknown]
  - Carbon monoxide diffusing capacity decreased [Unknown]
  - Inspiratory capacity decreased [Unknown]
